FAERS Safety Report 4818853-1 (Version None)
Quarter: 2005Q4

REPORT INFORMATION
  Report Type: 
  Country: None (occurrence: None)
  Receive Date: 20051101
  Receipt Date: 20051021
  Transmission Date: 20060501
  Serious: Yes (Hospitalization, Other)
  Sender: FDA-Public Use
  Company Number: KII-2005-0019252

PATIENT
  Age: 43 Year
  Sex: Male

DRUGS (5)
  1. OXYCONTIN [Suspect]
     Indication: INTENTIONAL DRUG MISUSE
     Dosage: INTRAVENOUS
     Route: 042
  2. COCAINE(COCAINE) [Suspect]
     Indication: INTENTIONAL DRUG MISUSE
     Dosage: INTRAVENOUS
     Route: 042
  3. ACETAMINOPHEN [Suspect]
  4. ASPIRIN [Suspect]
  5. METHADONE HCL [Concomitant]

REACTIONS (9)
  - BLOOD PRESSURE DECREASED [None]
  - CHILLS [None]
  - CYANOSIS [None]
  - FEELING COLD [None]
  - HEART RATE INCREASED [None]
  - OXYGEN SATURATION DECREASED [None]
  - PO2 DECREASED [None]
  - POLYSUBSTANCE ABUSE [None]
  - PYREXIA [None]
